FAERS Safety Report 9134582 (Version 1)
Quarter: 2013Q1

REPORT INFORMATION
  Report Type: Spontaneous
  Country: DE (occurrence: DE)
  Receive Date: 20130304
  Receipt Date: 20130304
  Transmission Date: 20140127
  Serious: Yes (Other)
  Sender: FDA-Public Use
  Company Number: PHNU2007DE00945

PATIENT
  Age: 64 Year
  Sex: Female
  Weight: 62 kg

DRUGS (8)
  1. ACLASTA [Suspect]
     Indication: OSTEOPOROSIS
     Dosage: 5 MG, ONCE/YEAR
     Route: 042
     Dates: start: 20070208
  2. ACLASTA [Suspect]
     Dosage: 5 MG, ONCE/YEAR
     Route: 042
     Dates: start: 200802
  3. L-THYROXINE [Concomitant]
     Dosage: 50 UG, QW
     Route: 048
     Dates: start: 200406
  4. L-THYROXINE [Concomitant]
     Dosage: 75 UG, QD
     Route: 048
  5. ROCALTROL [Concomitant]
     Dosage: 0.25 MG, QD
     Dates: start: 200409
  6. CALCIMAGON [Concomitant]
     Dosage: 1 DF, BID
     Dates: start: 200409
  7. ASS [Concomitant]
     Dosage: 100 MG, QD
     Route: 048
     Dates: start: 200409
  8. DHEA [Concomitant]
     Dates: start: 200409

REACTIONS (16)
  - Plasmacytoma [Unknown]
  - Orthostatic hypotension [Recovered/Resolved]
  - Peripheral vascular disorder [Recovered/Resolved]
  - Granuloma annulare [Recovered/Resolved]
  - Gingival swelling [Recovered/Resolved]
  - Toothache [Recovered/Resolved]
  - Influenza like illness [Recovered/Resolved]
  - Dyspnoea [Recovered/Resolved]
  - Pyrexia [Recovered/Resolved]
  - Hyperhidrosis [Recovered/Resolved]
  - Asthenia [Recovered/Resolved]
  - Rash [Not Recovered/Not Resolved]
  - Pruritus [Recovered/Resolved]
  - Weight decreased [Unknown]
  - Fatigue [Unknown]
  - Drug ineffective [Unknown]
